FAERS Safety Report 7687315-9 (Version None)
Quarter: 2011Q3

REPORT INFORMATION
  Report Type: 
  Country: None (occurrence: None)
  Receive Date: 20110816
  Receipt Date: 20110803
  Transmission Date: 20111222
  Serious: Yes (Other)
  Sender: FDA-Public Use
  Company Number: US-MYLANLABS-2011S1016379

PATIENT
  Age: 42 Year
  Sex: Female

DRUGS (4)
  1. LAMOTRIGINE [Concomitant]
     Indication: BIPOLAR DISORDER
     Route: 065
  2. WARFARIN SODIUM [Interacting]
     Route: 065
  3. VALPROATE SODIUM [Suspect]
     Indication: BIPOLAR DISORDER
     Route: 065
  4. VALPROATE SODIUM [Interacting]
     Dosage: STATED AS A HALF OF THE ADMISSION DOSE
     Route: 065

REACTIONS (2)
  - INTERNATIONAL NORMALISED RATIO INCREASED [None]
  - DRUG INTERACTION [None]
